FAERS Safety Report 8125993-0 (Version None)
Quarter: 2012Q1

REPORT INFORMATION
  Report Type: 
  Country: None (occurrence: None)
  Receive Date: 20120209
  Receipt Date: 20110705
  Transmission Date: 20120608
  Serious: No
  Sender: FDA-Public Use
  Company Number: US-BAUSCH-2011BL004366

PATIENT
  Age: 40 Year
  Sex: Female

DRUGS (2)
  1. SULFACETAMIDE SODIUM [Suspect]
     Indication: CONJUNCTIVITIS INFECTIVE
     Route: 047
     Dates: start: 20110702, end: 20110703
  2. CLARITIN-D [Concomitant]
     Indication: SEASONAL ALLERGY
     Route: 048

REACTIONS (2)
  - CHEMICAL BURNS OF EYE [None]
  - VISION BLURRED [None]
